FAERS Safety Report 13819286 (Version 1)
Quarter: 2017Q3

REPORT INFORMATION
  Report Type: Spontaneous
  Country: US (occurrence: US)
  Receive Date: 20170731
  Receipt Date: 20170731
  Transmission Date: 20171127
  Serious: Yes (Hospitalization)
  Sender: FDA-Public Use
  Company Number: None

PATIENT
  Age: 60 Year
  Sex: Male
  Weight: 102.1 kg

DRUGS (1)
  1. REMICADE [Suspect]
     Active Substance: INFLIXIMAB
     Indication: RHEUMATOID ARTHRITIS
     Dosage: 500 MG INTRAVENOUS DRIP EVERY 8 WEEKS
     Route: 041
     Dates: start: 20150201, end: 20170602

REACTIONS (9)
  - Upper respiratory tract infection [None]
  - Confusional state [None]
  - Myalgia [None]
  - Nausea [None]
  - Rash [None]
  - Chills [None]
  - Muscle twitching [None]
  - Tremor [None]
  - Headache [None]

NARRATIVE: CASE EVENT DATE: 20170602
